FAERS Safety Report 20081603 (Version 1)
Quarter: 2021Q4

REPORT INFORMATION
  Report Type: Spontaneous
  Country: GR (occurrence: GR)
  Receive Date: 20211117
  Receipt Date: 20211117
  Transmission Date: 20220303
  Serious: Yes (Other)
  Sender: FDA-Public Use
  Company Number: GR-MYLANLABS-2021M1054071

PATIENT
  Age: 78 Year
  Sex: Male

DRUGS (4)
  1. VERAPAMIL [Suspect]
     Active Substance: VERAPAMIL HYDROCHLORIDE
     Indication: Palpitations
     Dosage: UNK
  2. VERAPAMIL [Suspect]
     Active Substance: VERAPAMIL HYDROCHLORIDE
     Indication: Palpitations
     Dosage: 80 MILLIGRAM, BID (160 MILLIGRAM QD)
  3. FLECAINIDE [Suspect]
     Active Substance: FLECAINIDE
     Indication: Product used for unknown indication
     Dosage: 50 MILLIGRAM, 3X (150 MILLIGRAM QD)
  4. FLECAINIDE [Suspect]
     Active Substance: FLECAINIDE
     Dosage: 250 MILLIGRAM, QD(100 MG + 50 MG + 100 MG / DAY )

REACTIONS (5)
  - Electrocardiogram abnormal [Unknown]
  - Fatigue [Not Recovered/Not Resolved]
  - Bradycardia [Recovered/Resolved]
  - Labelled drug-drug interaction medication error [Unknown]
  - Drug ineffective [Unknown]
